FAERS Safety Report 21275450 (Version 1)
Quarter: 2022Q3

REPORT INFORMATION
  Report Type: Spontaneous
  Country: US (occurrence: None)
  Receive Date: 20220831
  Receipt Date: 20220831
  Transmission Date: 20221026
  Serious: Yes (Death)
  Sender: FDA-Public Use
  Company Number: None

PATIENT
  Age: 75 Year
  Sex: Female
  Weight: 72.2 kg

DRUGS (1)
  1. VANCOMYCIN [Suspect]
     Active Substance: VANCOMYCIN
     Indication: Pilonidal disease
     Dosage: FREQUENCY : ONCE;?
     Route: 042
     Dates: start: 20220810

REACTIONS (6)
  - Pruritus [None]
  - Unresponsive to stimuli [None]
  - Blood pressure increased [None]
  - Heart rate increased [None]
  - Dyspnoea [None]
  - Blood pressure decreased [None]

NARRATIVE: CASE EVENT DATE: 20220810
